FAERS Safety Report 8893971 (Version 3)
Quarter: 2012Q4

REPORT INFORMATION
  Report Type: 
  Country: US (occurrence: US)
  Receive Date: 20121108
  Receipt Date: 20121204
  Transmission Date: 20130627
  Serious: No
  Sender: FDA-Public Use
  Company Number: US-TEVA-369134USA

PATIENT
  Age: 19 Year
  Sex: Female
  Weight: 56.75 kg

DRUGS (1)
  1. PLAN B ONE-STEP [Suspect]
     Indication: POST COITAL CONTRACEPTION
     Dosage: 1.5 Milligram Daily;
     Route: 048
     Dates: start: 20121002, end: 20121002

REACTIONS (4)
  - Headache [Recovered/Resolved]
  - Nausea [Recovered/Resolved]
  - Vomiting [Recovered/Resolved]
  - Breast tenderness [Recovered/Resolved]
